FAERS Safety Report 15058618 (Version 4)
Quarter: 2020Q2

REPORT INFORMATION
  Report Type: Spontaneous
  Country: US (occurrence: US)
  Receive Date: 20180625
  Receipt Date: 20200624
  Transmission Date: 20200713
  Serious: Yes (Life-Threatening, Hospitalization, Other)
  Sender: FDA-Public Use
  Company Number: US-BRISTOL-MYERS SQUIBB COMPANY-BMS-2018-056809

PATIENT
  Sex: Female

DRUGS (3)
  1. OPDIVO [Suspect]
     Active Substance: NIVOLUMAB
     Indication: METASTASES TO LIVER
     Route: 065
  2. OPDIVO [Suspect]
     Active Substance: NIVOLUMAB
     Indication: SMALL CELL LUNG CANCER
     Dosage: UNAVAILABLE
     Route: 065
     Dates: start: 20180615
  3. OPDIVO [Suspect]
     Active Substance: NIVOLUMAB
     Indication: METASTASES TO CENTRAL NERVOUS SYSTEM
     Route: 065

REACTIONS (3)
  - Respiratory failure [Unknown]
  - Intentional product use issue [Unknown]
  - Pneumonitis [Unknown]

NARRATIVE: CASE EVENT DATE: 201806
